FAERS Safety Report 13176879 (Version 2)
Quarter: 2018Q4

REPORT INFORMATION
  Report Type: Spontaneous
  Country: US (occurrence: US)
  Receive Date: 20170201
  Receipt Date: 20181220
  Transmission Date: 20190204
  Serious: No
  Sender: FDA-Public Use
  Company Number: US-PFIZER INC-2017038712

PATIENT
  Age: 42 Year
  Sex: Female

DRUGS (2)
  1. PRISTIQ EXTENDED-RELEASE [Concomitant]
     Active Substance: DESVENLAFAXINE SUCCINATE
  2. DETROL LA [Suspect]
     Active Substance: TOLTERODINE TARTRATE
     Indication: POLLAKIURIA
     Dosage: 1 DF, UNK

REACTIONS (4)
  - Pollakiuria [Unknown]
  - Condition aggravated [Unknown]
  - Intentional product use issue [Unknown]
  - Drug ineffective [Unknown]
